FAERS Safety Report 9445287 (Version 3)
Quarter: 2013Q3

REPORT INFORMATION
  Report Type: Spontaneous
  Country: CN (occurrence: CN)
  Receive Date: 20130807
  Receipt Date: 20130911
  Transmission Date: 20140515
  Serious: Yes (Other)
  Sender: FDA-Public Use
  Company Number: CN-GLAXOSMITHKLINE-B0913850A

PATIENT
  Age: 26 Year
  Sex: Male
  Weight: 60 kg

DRUGS (4)
  1. SEROXAT [Suspect]
     Indication: ANXIETY
     Dosage: 40MG PER DAY
     Route: 048
     Dates: start: 201306, end: 20130804
  2. DIAZEPAM [Suspect]
     Indication: ANXIETY
     Dosage: .25MG PER DAY
     Route: 048
     Dates: start: 201306
  3. CHINESE MEDICATION [Suspect]
     Indication: DREAMY STATE
     Route: 048
     Dates: start: 201307
  4. MIRTAZAPINE [Concomitant]
     Route: 065

REACTIONS (8)
  - Road traffic accident [Recovered/Resolved]
  - Excoriation [Recovered/Resolved]
  - Insomnia [Unknown]
  - Acne [Recovered/Resolved]
  - Dreamy state [Recovering/Resolving]
  - Condition aggravated [Recovering/Resolving]
  - Acne [Unknown]
  - Tenderness [Unknown]
